FAERS Safety Report 9432509 (Version 4)
Quarter: 2014Q1

REPORT INFORMATION
  Report Type: Report from Study
  Country: US (occurrence: US)
  Receive Date: 20130731
  Receipt Date: 20140114
  Transmission Date: 20141002
  Serious: Yes (Hospitalization)
  Sender: FDA-Public Use
  Company Number: US-SANOFI-AVENTIS-2013SA056776

PATIENT
  Age: 67 Year
  Sex: Female
  Weight: 66.22 kg

DRUGS (8)
  1. AUBAGIO [Suspect]
     Indication: MULTIPLE SCLEROSIS
     Route: 048
     Dates: start: 20130227, end: 20130928
  2. BACLOFEN [Concomitant]
     Indication: MULTIPLE SCLEROSIS
     Dosage: 1/2 FOUR TIMES A DAY?DATE STRATED - 14 TH APRIL
     Route: 065
  3. ASPIRIN [Concomitant]
     Dosage: 1 DAILY?DATE STARTED - 11TH FEB
     Route: 065
  4. VITAMIN C [Concomitant]
     Indication: NUTRITIONAL SUPPLEMENTATION
     Dosage: TAKEN FROM - 10TH JUNE
     Route: 065
  5. SPIRONOLACTONE [Concomitant]
     Route: 048
  6. FERROUS SULFATE [Concomitant]
     Route: 065
  7. HYDROCHLOROTHIAZIDE [Concomitant]
     Dosage: HALF TABLET
     Route: 065
  8. BACTRIM DS [Concomitant]
     Route: 065

REACTIONS (5)
  - Hypokalaemia [Recovered/Resolved]
  - Oedema peripheral [Recovered/Resolved]
  - Fluid retention [Recovered/Resolved]
  - Cystitis [Unknown]
  - Hypotension [Unknown]
